FAERS Safety Report 17254359 (Version 2)
Quarter: 2020Q4

REPORT INFORMATION
  Report Type: Spontaneous
  Country: US (occurrence: US)
  Receive Date: 20200109
  Receipt Date: 20201204
  Transmission Date: 20210113
  Serious: Yes (Other)
  Sender: FDA-Public Use
  Company Number: US-PURDUE PHARMA-USA-2020-0149522

PATIENT
  Sex: Female

DRUGS (3)
  1. OXYCONTIN [Suspect]
     Active Substance: OXYCODONE HYDROCHLORIDE
     Indication: BACK INJURY
     Dosage: 20 MG, TID
     Route: 048
     Dates: end: 2001
  2. OXYCONTIN [Suspect]
     Active Substance: OXYCODONE HYDROCHLORIDE
     Indication: SURGERY
     Dosage: 30 MG, TID
     Route: 048
     Dates: start: 2001
  3. LORCET PLUS [Concomitant]
     Active Substance: ACETAMINOPHEN\HYDROCODONE BITARTRATE
     Indication: BACK INJURY
     Dosage: UNK
     Route: 048
     Dates: end: 2002

REACTIONS (9)
  - Diabetes mellitus [Not Recovered/Not Resolved]
  - Tooth extraction [Unknown]
  - Tooth fracture [Not Recovered/Not Resolved]
  - Knee operation [Unknown]
  - Inappropriate schedule of product administration [Unknown]
  - Spinal operation [Unknown]
  - General physical health deterioration [Not Recovered/Not Resolved]
  - Drug dependence [Unknown]
  - Gallbladder operation [Unknown]

NARRATIVE: CASE EVENT DATE: 2001
